FAERS Safety Report 19415818 (Version 1)
Quarter: 2021Q2

REPORT INFORMATION
  Report Type: Spontaneous
  Country: US (occurrence: US)
  Receive Date: 20210615
  Receipt Date: 20210615
  Transmission Date: 20210717
  Serious: No
  Sender: FDA-Public Use
  Company Number: US-ALLERGAN-2020377US

PATIENT
  Age: 45 Year
  Sex: Female

DRUGS (3)
  1. OTC VITAMINS (MULTI VITAMIN,HAIR, SKIN AND NAILS, VITAMIN C) [Concomitant]
     Dosage: UNK, QD
  2. KYBELLA [Suspect]
     Active Substance: DEOXYCHOLIC ACID
     Indication: FAT TISSUE DECREASED
     Dosage: 1 VIAL AT EACH INJECTION, SINGLE
     Route: 058
     Dates: start: 20200202, end: 20200202
  3. KYBELLA [Suspect]
     Active Substance: DEOXYCHOLIC ACID
     Dosage: 1 VIAL AT EACH INJECTION, SINGLE
     Route: 058
     Dates: start: 20191201, end: 20191201

REACTIONS (4)
  - Patient dissatisfaction with treatment [Unknown]
  - Injection site swelling [Recovered/Resolved]
  - Injection site bruising [Recovered/Resolved]
  - Drug ineffective [Unknown]
